FAERS Safety Report 23721393 (Version 1)
Quarter: 2024Q2

REPORT INFORMATION
  Report Type: Other
  Country: US (occurrence: None)
  Receive Date: 20240409
  Receipt Date: 20240409
  Transmission Date: 20240715
  Serious: Yes (Hospitalization)
  Sender: FDA-Public Use
  Company Number: US-ROCHE-3533982

PATIENT
  Age: 49 Year
  Sex: Female
  Weight: 79.45 kg

DRUGS (9)
  1. OCREVUS [Suspect]
     Active Substance: OCRELIZUMAB
     Indication: Relapsing-remitting multiple sclerosis
     Dosage: DATE OF TREATMENT: 07/APR/2021, 07/OCT/2021, 05/APR/2022, 14/OCT/2022, 07/APR/2023, 13/OCT/2023,
     Route: 042
  2. TAMIFLU [Suspect]
     Active Substance: OSELTAMIVIR PHOSPHATE
     Indication: Influenza
     Route: 048
     Dates: start: 20240309, end: 20240314
  3. DEXAMETHASONE [Concomitant]
     Active Substance: DEXAMETHASONE
     Route: 042
  4. DIPHENHYDRAMINE [Concomitant]
     Active Substance: DIPHENHYDRAMINE
     Route: 042
  5. METHYLPREDNISOLONE [Concomitant]
     Active Substance: METHYLPREDNISOLONE
     Route: 042
  6. GRANISETRON [Concomitant]
     Active Substance: GRANISETRON
     Dosage: 1000 MCG
     Route: 042
  7. FAMOTIDINE [Concomitant]
     Active Substance: FAMOTIDINE
     Route: 042
  8. EPINEPHRINE [Concomitant]
     Active Substance: EPINEPHRINE
     Indication: Hypersensitivity
     Dosage: AS NEEDED
     Route: 042
  9. HYDROCORTISONE [Concomitant]
     Active Substance: HYDROCORTISONE
     Indication: Hypersensitivity
     Dosage: AS NEEDED
     Route: 042

REACTIONS (6)
  - Influenza [Recovered/Resolved]
  - Coronavirus infection [Not Recovered/Not Resolved]
  - Gait disturbance [Unknown]
  - Fall [Unknown]
  - Headache [Not Recovered/Not Resolved]
  - Cerebral disorder [Not Recovered/Not Resolved]

NARRATIVE: CASE EVENT DATE: 20240321
